FAERS Safety Report 9912436 (Version 2)
Quarter: 2014Q2

REPORT INFORMATION
  Report Type: Spontaneous
  Country: IT (occurrence: IT)
  Receive Date: 20140220
  Receipt Date: 20140414
  Transmission Date: 20141212
  Serious: Yes (Hospitalization)
  Sender: FDA-Public Use
  Company Number: IT-BRISTOL-MYERS SQUIBB COMPANY-20232450

PATIENT
  Age: 92 Year
  Sex: Female

DRUGS (8)
  1. GLUCOPHAGE POWDER [Suspect]
     Indication: DIABETES MELLITUS
     Dosage: POWDER FOR ORAL SOLUTION
     Route: 048
     Dates: start: 20100101, end: 20140131
  2. TAREG [Suspect]
     Indication: HYPERTENSION
     Dosage: FILM COATED TABLETS
     Route: 048
     Dates: start: 20131020, end: 20140131
  3. ALDACTONE [Suspect]
     Dosage: 1DF: 25 MG CAPSULES
     Route: 048
     Dates: start: 20131020, end: 20140131
  4. FUROSEMIDE [Concomitant]
     Route: 048
  5. ALLOPURINOL [Concomitant]
  6. ESOMEPRAZOLE [Concomitant]
  7. CARDICOR [Concomitant]
     Dosage: 1DF: 1.25MG TABLETS
  8. CARDIOASPIRINE [Concomitant]
     Dosage: 1DF: 100MG, GASTRORESISTANT TABLET

REACTIONS (3)
  - Acute prerenal failure [Recovering/Resolving]
  - Acidosis [Recovering/Resolving]
  - Hyperkalaemia [Recovering/Resolving]
